FAERS Safety Report 7199621-5 (Version None)
Quarter: 2010Q4

REPORT INFORMATION
  Report Type: 
  Country: None (occurrence: None)
  Receive Date: 20101228
  Receipt Date: 20101215
  Transmission Date: 20110411
  Serious: Yes (Hospitalization, Other)
  Sender: FDA-Public Use
  Company Number: US-ELI_LILLY_AND_COMPANY-US201005005995

PATIENT
  Sex: Female
  Weight: 53.061 kg

DRUGS (2)
  1. FORTEO [Suspect]
     Indication: OSTEOPENIA
     Dosage: 20 UG, DAILY (1/D)
     Route: 065
     Dates: start: 20100521
  2. KETOPROFEN [Concomitant]
     Dosage: UNK, UNKNOWN
     Route: 065

REACTIONS (8)
  - COMPRESSION FRACTURE [None]
  - DIZZINESS [None]
  - FOOT FRACTURE [None]
  - HEADACHE [None]
  - INJECTION SITE PAIN [None]
  - MUSCLE SPASMS [None]
  - OFF LABEL USE [None]
  - PAIN IN EXTREMITY [None]
